FAERS Safety Report 6787849-5 (Version None)
Quarter: 2010Q2

REPORT INFORMATION
  Report Type: 
  Country: None (occurrence: None)
  Receive Date: 20100623
  Receipt Date: 20100615
  Transmission Date: 20101027
  Serious: Yes (Hospitalization, Other)
  Sender: FDA-Public Use
  Company Number: US-AMGEN-QUU418580

PATIENT
  Sex: Female

DRUGS (10)
  1. ENBREL [Suspect]
     Indication: DRUG USE FOR UNKNOWN INDICATION
  2. HUMIRA [Suspect]
     Indication: RHEUMATOID ARTHRITIS
     Dates: start: 20090101
  3. DILTIAZEM [Concomitant]
  4. TRIAMTERENE [Concomitant]
  5. METHOTREXATE [Concomitant]
  6. FOLIC ACID [Concomitant]
  7. LANSOPRAZOLE [Concomitant]
  8. PRAVASTATIN [Concomitant]
  9. NITROGLYCERIN [Concomitant]
     Route: 060
  10. AMITRIPTYLINE [Concomitant]

REACTIONS (8)
  - CEREBROVASCULAR ACCIDENT [None]
  - CONFUSIONAL STATE [None]
  - CORONARY ARTERY OCCLUSION [None]
  - INJECTION SITE DERMATITIS [None]
  - PNEUMONIA [None]
  - SPEECH DISORDER [None]
  - TRANSIENT ISCHAEMIC ATTACK [None]
  - VISION BLURRED [None]
